FAERS Safety Report 5303949-0 (Version None)
Quarter: 2007Q1

REPORT INFORMATION
  Report Type: 
  Country: None (occurrence: None)
  Receive Date: 20070201
  Receipt Date: 20061120
  Transmission Date: 20070707
  Serious: No
  Sender: FDA-Public Use
  Company Number: 2006PV025635

PATIENT
  Age: 64 Year
  Sex: Female
  Weight: 78.0187 kg

DRUGS (6)
  1. BYETTA [Suspect]
     Indication: DIABETES MELLITUS NON-INSULIN-DEPENDENT
     Dosage: 5 MCG;BID;SC
     Route: 058
     Dates: start: 20061118, end: 20061118
  2. NPH INSULIN [Concomitant]
  3. NOVOLOG [Concomitant]
  4. GLIPIZIDE [Concomitant]
  5. PREDNISONE TAB [Concomitant]
  6. STOOL SOFTNER [Concomitant]

REACTIONS (2)
  - DIARRHOEA [None]
  - WEIGHT DECREASED [None]
